FAERS Safety Report 6998672-0 (Version None)
Quarter: 2010Q3

REPORT INFORMATION
  Report Type: 
  Country: None (occurrence: None)
  Receive Date: 20100920
  Receipt Date: 20100318
  Transmission Date: 20110219
  Serious: No
  Sender: FDA-Public Use
  Company Number: US-ASTRAZENECA-2010SE12373

PATIENT
  Age: 747 Month
  Sex: Female
  Weight: 45.4 kg

DRUGS (4)
  1. SEROQUEL [Suspect]
     Indication: DEPRESSION
     Route: 048
     Dates: start: 20091101, end: 20091101
  2. SEROQUEL [Suspect]
     Route: 048
     Dates: start: 20091101
  3. LIPITOR [Concomitant]
     Route: 048
  4. ADDERALL XR 10 [Concomitant]
     Route: 048

REACTIONS (2)
  - INCOHERENT [None]
  - SOMNOLENCE [None]
